FAERS Safety Report 4393456-4 (Version None)
Quarter: 2004Q3

REPORT INFORMATION
  Report Type: 
  Country: None (occurrence: None)
  Receive Date: 20040701
  Receipt Date: 20040618
  Transmission Date: 20050211
  Serious: Yes (Other)
  Sender: FDA-Public Use
  Company Number: 2004040743

PATIENT

DRUGS (1)
  1. ZITHROMAX [Suspect]
     Indication: PHARYNGITIS
     Dosage: (1 D), ORAL
     Route: 048
     Dates: start: 20040603, end: 20040605

REACTIONS (1)
  - ERYTHEMA MULTIFORME [None]
